FAERS Safety Report 5119737-4 (Version None)
Quarter: 2006Q4

REPORT INFORMATION
  Report Type: 
  Country: None (occurrence: None)
  Receive Date: 20061003
  Receipt Date: 20060516
  Transmission Date: 20070319
  Serious: Yes (Hospitalization)
  Sender: FDA-Public Use
  Company Number: US-SANOFI-SYNTHELABO-A03200603122

PATIENT
  Sex: Female
  Weight: 63.49 kg

DRUGS (5)
  1. PLAVIX [Suspect]
     Indication: THROMBOSIS
     Route: 048
     Dates: start: 20030101
  2. TRAZODONE HCL [Concomitant]
     Dosage: UNK
     Route: 048
     Dates: start: 20050101
  3. EFFEXOR [Concomitant]
     Dosage: UNK
     Route: 048
     Dates: start: 20010101
  4. LOPRESSOR [Concomitant]
     Dosage: UNK
     Route: 048
  5. FOSAMAX [Concomitant]
     Dosage: UNK
     Route: 048

REACTIONS (4)
  - ARTERIAL THROMBOSIS LIMB [None]
  - CAROTID ARTERY THROMBOSIS [None]
  - CORONARY ARTERY OCCLUSION [None]
  - HYPERTENSION [None]
